FAERS Safety Report 17964223 (Version 1)
Quarter: 2020Q2

REPORT INFORMATION
  Report Type: Spontaneous
  Country: US (occurrence: US)
  Receive Date: 20200630
  Receipt Date: 20200630
  Transmission Date: 20200714
  Serious: Yes (Hospitalization)
  Sender: FDA-Public Use
  Company Number: US-ASTRAZENECA-2020SE82467

PATIENT
  Age: 826 Month
  Sex: Female
  Weight: 44.9 kg

DRUGS (2)
  1. MOVANTIK [Suspect]
     Active Substance: NALOXEGOL OXALATE
     Indication: DRUG USE DISORDER
     Route: 048
     Dates: start: 201904
  2. MOVANTIK [Suspect]
     Active Substance: NALOXEGOL OXALATE
     Indication: DRUG USE DISORDER
     Route: 048

REACTIONS (3)
  - Dyspnoea [Unknown]
  - Neck pain [Unknown]
  - Product use complaint [Unknown]

NARRATIVE: CASE EVENT DATE: 202006
